FAERS Safety Report 21790105 (Version 3)
Quarter: 2023Q1

REPORT INFORMATION
  Report Type: Spontaneous
  Country: PL (occurrence: PL)
  Receive Date: 20221228
  Receipt Date: 20230309
  Transmission Date: 20230418
  Serious: Yes (Life-Threatening, Hospitalization)
  Sender: FDA-Public Use
  Company Number: PL-MYLANLABS-2022M1146716

PATIENT
  Age: 67 Year
  Sex: Female

DRUGS (21)
  1. VANCOMYCIN [Suspect]
     Active Substance: VANCOMYCIN
     Indication: Clostridium difficile colitis
     Dosage: UNK
     Route: 065
     Dates: start: 20210325, end: 20210408
  2. VANCOMYCIN [Suspect]
     Active Substance: VANCOMYCIN
     Indication: Clostridium difficile infection
     Dosage: 2 GRAM, QD
     Route: 065
     Dates: start: 2021
  3. PANTOPRAZOLE [Suspect]
     Active Substance: PANTOPRAZOLE
     Indication: Colitis ulcerative
     Dosage: UNK
     Route: 065
     Dates: start: 20210114
  4. CEFTRIAXONE [Suspect]
     Active Substance: CEFTRIAXONE
     Indication: COVID-19
     Dosage: UNK
     Route: 065
     Dates: start: 202101
  5. CEFTRIAXONE [Suspect]
     Active Substance: CEFTRIAXONE
     Dosage: UNK
     Route: 065
     Dates: start: 2021
  6. DEXAMETHASONE [Suspect]
     Active Substance: DEXAMETHASONE
     Indication: COVID-19
     Dosage: UNK
     Route: 065
     Dates: start: 2021
  7. ENOXAPARIN [Suspect]
     Active Substance: ENOXAPARIN
     Indication: COVID-19
     Dosage: UNK
     Route: 065
     Dates: start: 202101
  8. ENOXAPARIN [Suspect]
     Active Substance: ENOXAPARIN
     Dosage: UNK
     Route: 065
     Dates: start: 2021
  9. PREDNISONE [Suspect]
     Active Substance: PREDNISONE
     Indication: Colitis ulcerative
     Dosage: UNK
     Route: 065
     Dates: start: 2021
  10. MESALAMINE [Suspect]
     Active Substance: MESALAMINE
     Indication: Colitis ulcerative
     Dosage: UNK
     Route: 065
     Dates: start: 20210114
  11. MESALAMINE [Suspect]
     Active Substance: MESALAMINE
     Dosage: UNK
     Route: 065
     Dates: start: 202101
  12. HYDROCORTISONE [Suspect]
     Active Substance: HYDROCORTISONE
     Indication: Colitis ulcerative
     Dosage: UNK
     Route: 065
     Dates: start: 202101
  13. MEBEVERINE [Suspect]
     Active Substance: MEBEVERINE
     Indication: Colitis ulcerative
     Dosage: UNK
     Route: 065
     Dates: start: 20210114
  14. METRONIDAZOLE [Suspect]
     Active Substance: METRONIDAZOLE
     Indication: Clostridium difficile colitis
     Dosage: UNK
     Route: 065
     Dates: start: 202102
  15. HYDROCORTISONE [Concomitant]
     Active Substance: HYDROCORTISONE
     Indication: Colitis ulcerative
     Dosage: UNK
     Route: 065
     Dates: start: 20210114
  16. MEBEVERINE [Concomitant]
     Active Substance: MEBEVERINE
     Indication: Symptomatic treatment
     Dosage: UNK
     Route: 065
     Dates: start: 202101
  17. MEBEVERINE [Concomitant]
     Active Substance: MEBEVERINE
     Dosage: UNK
     Route: 065
     Dates: start: 2021
  18. PANTOPRAZOLE [Concomitant]
     Active Substance: PANTOPRAZOLE
     Indication: Symptomatic treatment
     Dosage: UNK
     Route: 065
     Dates: start: 202101
  19. PANTOPRAZOLE [Concomitant]
     Active Substance: PANTOPRAZOLE
     Dosage: UNK
     Route: 065
     Dates: start: 2021
  20. PREDNISONE [Concomitant]
     Active Substance: PREDNISONE
     Indication: Dysplasia
     Dosage: UNK
     Route: 065
  21. METRONIDAZOLE [Concomitant]
     Active Substance: METRONIDAZOLE
     Indication: Clostridium difficile infection
     Dosage: UNK
     Route: 065
     Dates: start: 2021

REACTIONS (5)
  - Clostridium difficile colitis [Recovered/Resolved]
  - Treatment failure [Unknown]
  - Drug ineffective [Unknown]
  - Clostridium difficile infection [Recovered/Resolved]
  - Off label use [Unknown]

NARRATIVE: CASE EVENT DATE: 20210101
